FAERS Safety Report 5933623-9 (Version None)
Quarter: 2008Q4

REPORT INFORMATION
  Report Type: 
  Country: None (occurrence: None)
  Receive Date: 20081029
  Receipt Date: 20081021
  Transmission Date: 20090506
  Serious: Yes (Hospitalization)
  Sender: FDA-Public Use
  Company Number: JP-JNJFOC-20081004679

PATIENT
  Sex: Female
  Weight: 44 kg

DRUGS (13)
  1. TRAMADOL HCL [Suspect]
     Indication: PAIN
     Dosage: 0-3 TABLETS
     Route: 048
  2. MUCOSTA [Concomitant]
     Indication: NAUSEA
     Route: 048
  3. PRIMPERAN [Concomitant]
     Indication: NAUSEA
     Route: 048
  4. LOXONIN [Concomitant]
     Indication: RHEUMATOID ARTHRITIS
     Route: 048
  5. NEOISCOTIN [Concomitant]
     Indication: INFECTION PROPHYLAXIS
     Route: 048
  6. RHEUMATREX [Concomitant]
     Indication: RHEUMATOID ARTHRITIS
     Route: 048
  7. ACTONEL [Concomitant]
     Indication: OSTEOPOROSIS
     Route: 048
  8. MYSLEE [Concomitant]
     Indication: INSOMNIA
     Route: 048
  9. MOBIC [Concomitant]
     Indication: RHEUMATOID ARTHRITIS
     Route: 048
  10. RABEPRAZOLE SODIUM [Concomitant]
     Route: 048
  11. NORVASC [Concomitant]
     Indication: HYPERTENSION
     Route: 048
  12. BIOFERMIN [Concomitant]
     Indication: CONSTIPATION
     Route: 048
  13. MAGNESIUM OXIDE [Concomitant]
     Indication: CONSTIPATION
     Route: 048

REACTIONS (1)
  - SUDDEN HEARING LOSS [None]
